FAERS Safety Report 18891727 (Version 1)
Quarter: 2021Q1

REPORT INFORMATION
  Report Type: Spontaneous
  Country: US (occurrence: US)
  Receive Date: 20210215
  Receipt Date: 20210215
  Transmission Date: 20210420
  Serious: No
  Sender: FDA-Public Use
  Company Number: US-SA-2021SA051780

PATIENT
  Sex: Female

DRUGS (7)
  1. METHOTREXATE. [Concomitant]
     Active Substance: METHOTREXATE
     Indication: HORDEOLUM
  2. TACROLIMUS. [Concomitant]
     Active Substance: TACROLIMUS
     Indication: HORDEOLUM
  3. TACROLIMUS. [Concomitant]
     Active Substance: TACROLIMUS
     Indication: DRY EYE
  4. METHOTREXATE. [Concomitant]
     Active Substance: METHOTREXATE
     Indication: DRY EYE
  5. METHOTREXATE. [Concomitant]
     Active Substance: METHOTREXATE
     Indication: BLEPHARITIS
  6. TACROLIMUS. [Concomitant]
     Active Substance: TACROLIMUS
     Indication: BLEPHARITIS
  7. DUPIXENT [Suspect]
     Active Substance: DUPILUMAB
     Indication: DERMATITIS ATOPIC
     Dosage: 300 MG, QOW
     Route: 058

REACTIONS (1)
  - Pruritus [Unknown]
